FAERS Safety Report 7218382-4 (Version None)
Quarter: 2011Q1

REPORT INFORMATION
  Report Type: 
  Country: None (occurrence: None)
  Receive Date: 20110110
  Receipt Date: 20110104
  Transmission Date: 20110831
  Serious: Yes (Other)
  Sender: FDA-Public Use
  Company Number: US-AMGEN-USASP2011000962

PATIENT

DRUGS (1)
  1. ENBREL [Suspect]
     Dosage: 50 MG, QWK
     Dates: start: 20100101

REACTIONS (4)
  - HIP ARTHROPLASTY [None]
  - PLATELET DISORDER [None]
  - LYMPHADENOPATHY [None]
  - PLATELET COUNT DECREASED [None]
